FAERS Safety Report 13574342 (Version 3)
Quarter: 2017Q3

REPORT INFORMATION
  Report Type: Spontaneous
  Country: US (occurrence: US)
  Receive Date: 20170523
  Receipt Date: 20170710
  Transmission Date: 20171127
  Serious: Yes (Other)
  Sender: FDA-Public Use
  Company Number: US-INCYTE CORPORATION-2017IN003855

PATIENT

DRUGS (5)
  1. JAKAFI [Suspect]
     Active Substance: RUXOLITINIB
     Indication: MYELODYSPLASTIC SYNDROME
  2. ASPIRIN                            /00002701/ [Concomitant]
     Active Substance: ASPIRIN
     Indication: PRODUCT USED FOR UNKNOWN INDICATION
     Dosage: 81 MG DAILY
     Route: 048
  3. VITAMIN D3 [Concomitant]
     Active Substance: CHOLECALCIFEROL
     Indication: PRODUCT USED FOR UNKNOWN INDICATION
     Dosage: 1 CAPSULE BY MOUTH DAILY
     Route: 048
  4. FOLVITE                            /00024201/ [Concomitant]
     Indication: PRODUCT USED FOR UNKNOWN INDICATION
     Dosage: 2 TABLETS DAILY
  5. JAKAFI [Suspect]
     Active Substance: RUXOLITINIB
     Indication: MYELOPROLIFERATIVE NEOPLASM
     Dosage: 25 MG, QD
     Route: 048
     Dates: start: 20160317

REACTIONS (8)
  - Thrombocytosis [Unknown]
  - Lung disorder [Unknown]
  - Heart sounds [Unknown]
  - Refractory anaemia with ringed sideroblasts [Unknown]
  - Renal failure [Unknown]
  - Haemoglobin decreased [Unknown]
  - Off label use [Unknown]
  - Asthenia [Unknown]

NARRATIVE: CASE EVENT DATE: 20160317
